FAERS Safety Report 13536900 (Version 2)
Quarter: 2017Q3

REPORT INFORMATION
  Report Type: Report from Study
  Country: CA (occurrence: CA)
  Receive Date: 20170511
  Receipt Date: 20170706
  Transmission Date: 20171127
  Serious: Yes (Other)
  Sender: FDA-Public Use
  Company Number: PHHY2016CA018467

PATIENT
  Sex: Female

DRUGS (2)
  1. VOTRIENT [Suspect]
     Active Substance: PAZOPANIB HYDROCHLORIDE
     Indication: METASTATIC RENAL CELL CARCINOMA
     Dosage: 800 MG, UNK
     Route: 048
     Dates: start: 20160116
  2. VOTRIENT [Suspect]
     Active Substance: PAZOPANIB HYDROCHLORIDE
     Dosage: 400 MG, UNK
     Route: 048
     Dates: start: 20170116

REACTIONS (8)
  - Blood pressure abnormal [Unknown]
  - Hypotension [Unknown]
  - Creatine urine increased [Unknown]
  - Fatigue [Unknown]
  - Renal impairment [Unknown]
  - Ageusia [Unknown]
  - Nausea [Unknown]
  - Blood glucose increased [Recovering/Resolving]
